FAERS Safety Report 5625869-4 (Version None)
Quarter: 2008Q1

REPORT INFORMATION
  Report Type: 
  Country: None (occurrence: None)
  Receive Date: 20080207
  Receipt Date: 20080207
  Transmission Date: 20080703
  Serious: Yes (Other)
  Sender: FDA-Public Use
  Company Number: None

PATIENT
  Age: 67 Year
  Sex: Male
  Weight: 70.7611 kg

DRUGS (3)
  1. HEPARIN [Suspect]
     Indication: AORTIC VALVE REPLACEMENT
     Dates: start: 20080110, end: 20080110
  2. HEPARIN [Suspect]
     Indication: CORONARY ARTERY DISEASE
     Dates: start: 20080110, end: 20080110
  3. HEPARIN [Suspect]
     Indication: TRICUSPID VALVE REPLACEMENT
     Dates: start: 20080110, end: 20080110

REACTIONS (3)
  - BLOOD PRESSURE DECREASED [None]
  - PHARMACEUTICAL PRODUCT COMPLAINT [None]
  - PROCEDURAL COMPLICATION [None]
